FAERS Safety Report 8974260 (Version 1)
Quarter: 2012Q4

REPORT INFORMATION
  Report Type: Spontaneous
  Country: GB (occurrence: None)
  Receive Date: 20121214
  Receipt Date: 20121214
  Transmission Date: 20130627
  Serious: Yes (Hospitalization)
  Sender: FDA-Public Use
  Company Number: 2012000268

PATIENT
  Age: 78 Year
  Sex: Male
  Weight: 82.6 kg

DRUGS (3)
  1. ACEON [Suspect]
     Indication: HYPERTENSION
     Dosage: UNK,  Oral
     Route: 048
     Dates: start: 20120920
  2. ASPIRIN (ACETYLSALICYLIC ACID) [Suspect]
     Indication: ANTIPLATELET THERAPY
     Dosage: 75 mg, qd, Oral
     Route: 048
     Dates: start: 20120920
  3. BISOPROLOL [Suspect]
     Indication: LEFT VENTRICULAR DYSFUNCTION
     Dosage: 2.5 mg,  qd,  Oral
     Route: 048
     Dates: start: 20120920

REACTIONS (1)
  - Abdominal abscess [None]
